FAERS Safety Report 20775352 (Version 1)
Quarter: 2022Q2

REPORT INFORMATION
  Report Type: Spontaneous
  Country: CZ (occurrence: CZ)
  Receive Date: 20220502
  Receipt Date: 20220502
  Transmission Date: 20220721
  Serious: Yes (Life-Threatening, Hospitalization, Other)
  Sender: FDA-Public Use
  Company Number: None

PATIENT
  Age: 66 Year
  Sex: Female

DRUGS (1)
  1. METHOTREXATE [Suspect]
     Active Substance: METHOTREXATE
     Indication: Rheumatoid arthritis
     Dosage: UNK UNK, QD
     Route: 065

REACTIONS (8)
  - Hepatosplenomegaly [Unknown]
  - Ascites [Unknown]
  - Haemorrhagic disorder [Recovering/Resolving]
  - Pancytopenia [Recovering/Resolving]
  - Hepatic cirrhosis [Unknown]
  - Asthenia [Recovering/Resolving]
  - Melaena [Unknown]
  - Inappropriate schedule of product administration [Unknown]

NARRATIVE: CASE EVENT DATE: 20210101
